FAERS Safety Report 4542224-9 (Version None)
Quarter: 2004Q4

REPORT INFORMATION
  Report Type: 
  Country: None (occurrence: None)
  Receive Date: 20041230
  Receipt Date: 20041222
  Transmission Date: 20050328
  Serious: Yes (Life-Threatening, Hospitalization)
  Sender: FDA-Public Use
  Company Number: JP-JNJFOC-20040501480

PATIENT
  Sex: Female
  Weight: 46 kg

DRUGS (20)
  1. REMICADE [Suspect]
     Dosage: 140 MG
     Route: 041
  2. REMICADE [Suspect]
     Indication: RHEUMATOID ARTHRITIS
     Route: 041
  3. RHEUMATREX [Suspect]
     Route: 049
     Dates: start: 19940201, end: 20040506
  4. RHEUMATREX [Suspect]
     Indication: RHEUMATOID ARTHRITIS
     Route: 049
     Dates: start: 19940201, end: 20040506
  5. INH [Concomitant]
     Indication: TUBERCULOSIS PROPHYLAXIS
     Route: 049
     Dates: start: 20040324, end: 20040506
  6. PREDNISOLONE [Concomitant]
     Indication: RHEUMATOID ARTHRITIS
     Route: 049
     Dates: start: 19960901, end: 20040506
  7. LOXONIN [Concomitant]
     Indication: RHEUMATOID ARTHRITIS
     Route: 049
  8. ROCALTROL [Concomitant]
     Route: 049
     Dates: end: 20040506
  9. HALFDIGOXIN [Concomitant]
     Route: 049
     Dates: end: 20040506
  10. CIBENOL [Concomitant]
     Route: 049
     Dates: end: 20040506
  11. RENDORMIN D [Concomitant]
     Route: 049
     Dates: end: 20040506
  12. FOLIAMIN [Concomitant]
     Route: 049
     Dates: end: 20040506
  13. JUVELA [Concomitant]
     Route: 049
     Dates: end: 20040506
  14. WARFARIN SODIUM [Concomitant]
     Route: 049
     Dates: end: 20040506
  15. MICARDIS [Concomitant]
     Route: 049
     Dates: end: 20040506
  16. RANTAC [Concomitant]
     Route: 049
  17. LENDORMIN [Concomitant]
     Route: 049
  18. VOLTAREN [Concomitant]
     Route: 054
  19. KETOPROFEN [Concomitant]
     Route: 061
  20. MIKAMUDISU [Concomitant]
     Route: 049

REACTIONS (7)
  - ANOREXIA [None]
  - ANOXIA [None]
  - ASTHMA [None]
  - DRUG INTERACTION [None]
  - INTERSTITIAL LUNG DISEASE [None]
  - PNEUMOCYSTIS CARINII PNEUMONIA [None]
  - PNEUMONITIS [None]
